FAERS Safety Report 24560052 (Version 2)
Quarter: 2025Q3

REPORT INFORMATION
  Report Type: Spontaneous
  Country: US (occurrence: US)
  Receive Date: 20241029
  Receipt Date: 20250816
  Transmission Date: 20251020
  Serious: No
  Sender: ALEXION PHARMACEUTICALS
  Company Number: US-AstraZeneca-CH-00731012A

PATIENT
  Age: 46 Year
  Sex: Female

DRUGS (3)
  1. TEZSPIRE [Suspect]
     Active Substance: TEZEPELUMAB-EKKO
     Route: 065
  2. TEZSPIRE [Suspect]
     Active Substance: TEZEPELUMAB-EKKO
  3. CETIRIZINE HYDROCHLORIDE [Concomitant]
     Active Substance: CETIRIZINE HYDROCHLORIDE
     Route: 065

REACTIONS (11)
  - Hypersensitivity [Unknown]
  - Eye disorder [Recovered/Resolved with Sequelae]
  - Eye pain [Recovering/Resolving]
  - Spinal pain [Recovered/Resolved]
  - Conjunctivitis allergic [Recovering/Resolving]
  - Back pain [Recovered/Resolved]
  - Ocular discomfort [Unknown]
  - Dyspnoea [Unknown]
  - Urticaria [Unknown]
  - Feeling abnormal [Recovering/Resolving]
  - Eye allergy [Recovering/Resolving]

NARRATIVE: CASE EVENT DATE: 20241014
